FAERS Safety Report 8224289 (Version 2)
Quarter: 2012Q4

REPORT INFORMATION
  Report Type: 
  Country: US (occurrence: US)
  Receive Date: 20111102
  Receipt Date: 20121107
  Transmission Date: 20130627
  Serious: No
  Sender: FDA-Public Use
  Company Number: US-AMGEN-USASP2011036723

PATIENT
  Sex: Female

DRUGS (3)
  1. ENBREL [Suspect]
     Indication: PSORIASIS
     Dosage: 50 mg, 2 times/wk
     Dates: start: 20110221, end: 201110
  2. ENBREL [Suspect]
     Indication: PSORIATIC ARTHROPATHY
  3. HUMIRA [Concomitant]

REACTIONS (3)
  - Nasopharyngitis [Not Recovered/Not Resolved]
  - Psoriasis [Recovering/Resolving]
  - Fatigue [Recovered/Resolved]
